FAERS Safety Report 5920059-X (Version None)
Quarter: 2008Q4

REPORT INFORMATION
  Report Type: 
  Country: None (occurrence: None)
  Receive Date: 20081014
  Receipt Date: 20080929
  Transmission Date: 20090506
  Serious: Yes (Death)
  Sender: FDA-Public Use
  Company Number: 08-222

PATIENT
  Sex: Male

DRUGS (1)
  1. FAZACLO ODT [Suspect]
     Indication: DRUG USE FOR UNKNOWN INDICATION
     Dosage: ^450 MG^ DAILY PO
     Route: 048
     Dates: start: 20060126, end: 20080728

REACTIONS (1)
  - DEATH [None]
